FAERS Safety Report 25706514 (Version 1)
Quarter: 2025Q3

REPORT INFORMATION
  Report Type: Spontaneous
  Country: US (occurrence: US)
  Receive Date: 20250820
  Receipt Date: 20250820
  Transmission Date: 20251020
  Serious: No
  Sender: CATALYST PHARMA
  Company Number: US-CATALYST PHARMACEUTICALS-US-CATA-25-00656

PATIENT
  Age: 9 Year
  Sex: Male
  Weight: 36.095 kg

DRUGS (6)
  1. AGAMREE [Suspect]
     Active Substance: VAMOROLONE
     Indication: Duchenne muscular dystrophy
     Dosage: 5 ML ONCE DAILY
     Route: 048
     Dates: start: 20250214
  2. VITAMINS [Concomitant]
     Active Substance: VITAMINS
     Indication: Hypovitaminosis
     Dosage: DAILY
     Route: 065
  3. CLARITIN [Concomitant]
     Active Substance: LORATADINE
     Indication: Seasonal allergy
     Route: 065
  4. FLONASE [Concomitant]
     Active Substance: FLUTICASONE PROPIONATE
     Indication: Seasonal allergy
     Route: 045
  5. LISINOPRIL [Concomitant]
     Active Substance: LISINOPRIL
     Indication: Cardiovascular disorder
     Dosage: 2.5 MG DAILY
     Route: 065
  6. GENOTROPIN [Concomitant]
     Active Substance: SOMATROPIN
     Indication: Hormone replacement therapy
     Dosage: 12 MG DAILY
     Route: 058

REACTIONS (1)
  - Ligament sprain [Recovering/Resolving]

NARRATIVE: CASE EVENT DATE: 20250401
